FAERS Safety Report 4630236-6 (Version None)
Quarter: 2005Q2

REPORT INFORMATION
  Report Type: 
  Country: None (occurrence: None)
  Receive Date: 20050406
  Receipt Date: 20050322
  Transmission Date: 20051028
  Serious: Yes (Other)
  Sender: FDA-Public Use
  Company Number: JP_050205863

PATIENT
  Age: 23 Year
  Sex: Male

DRUGS (6)
  1. ZYPREXA [Suspect]
     Indication: SCHIZOPHRENIA
     Dosage: 20 MG DAY
  2. LEVOTOMIN (LEVOMEPROMAZINE MALEATE) [Concomitant]
  3. ARTANE [Concomitant]
  4. DEPAS (ETIZOLAM) [Concomitant]
  5. LENDORM [Concomitant]
  6. LODOPIN (ZOTEPINE) [Concomitant]

REACTIONS (7)
  - ELECTROENCEPHALOGRAM ABNORMAL [None]
  - FALL [None]
  - GAZE PALSY [None]
  - GRAND MAL CONVULSION [None]
  - LOSS OF CONSCIOUSNESS [None]
  - PARTIAL SEIZURES [None]
  - REFUSAL OF TREATMENT BY PATIENT [None]
